FAERS Safety Report 6614386-0 (Version None)
Quarter: 2010Q1

REPORT INFORMATION
  Report Type: 
  Country: None (occurrence: None)
  Receive Date: 20100304
  Receipt Date: 20100301
  Transmission Date: 20100710
  Serious: Yes (Death, Other)
  Sender: FDA-Public Use
  Company Number: US-CELGENEUS-163-20785-09100446

PATIENT
  Sex: Female

DRUGS (1)
  1. THALOMID [Suspect]
     Indication: MYELODYSPLASTIC SYNDROME
     Route: 048
     Dates: start: 20090501, end: 20090101

REACTIONS (4)
  - CEREBRAL HAEMORRHAGE [None]
  - FALL [None]
  - NEOPLASM PROGRESSION [None]
  - PLATELET COUNT DECREASED [None]
